FAERS Safety Report 5091495-1 (Version None)
Quarter: 2006Q3

REPORT INFORMATION
  Report Type: 
  Country: None (occurrence: None)
  Receive Date: 20060829
  Receipt Date: 20060712
  Transmission Date: 20061208
  Serious: Yes (Death)
  Sender: FDA-Public Use
  Company Number: 2006CG01222

PATIENT
  Age: 26 Year
  Sex: Male

DRUGS (2)
  1. ATENOLOL [Suspect]
     Indication: VENTRICULAR TACHYCARDIA
     Route: 048
     Dates: start: 20060706
  2. CORGARD [Suspect]
     Indication: VENTRICULAR TACHYCARDIA
     Route: 048
     Dates: end: 20060705

REACTIONS (2)
  - HEART RATE DECREASED [None]
  - SUDDEN DEATH [None]
